FAERS Safety Report 7338277-5 (Version None)
Quarter: 2011Q1

REPORT INFORMATION
  Report Type: 
  Country: None (occurrence: None)
  Receive Date: 20110308
  Receipt Date: 20110302
  Transmission Date: 20110831
  Serious: Yes (Other)
  Sender: FDA-Public Use
  Company Number: JP-PFIZER INC-2011046360

PATIENT
  Age: 65 Year
  Sex: Female

DRUGS (5)
  1. NORVASC [Concomitant]
  2. LYRICA [Suspect]
     Indication: PAIN
     Dosage: 150 MG/DAY
     Dates: start: 20110223, end: 20110224
  3. METHYCOBAL [Concomitant]
  4. FLUITRAN [Concomitant]
  5. FOLIRONT [Concomitant]

REACTIONS (6)
  - DIZZINESS [None]
  - ARRHYTHMIA [None]
  - OEDEMA [None]
  - EYE OEDEMA [None]
  - NAUSEA [None]
  - LACRIMATION INCREASED [None]
